FAERS Safety Report 9523906 (Version 1)
Quarter: 2013Q3

REPORT INFORMATION
  Report Type: Spontaneous
  Country: US (occurrence: None)
  Receive Date: 20130912
  Receipt Date: 20130912
  Transmission Date: 20140515
  Serious: Yes (Life-Threatening)
  Sender: FDA-Public Use
  Company Number: 1889193

PATIENT
  Sex: Male

DRUGS (3)
  1. KETAMINE HYDROCHLORIDE [Suspect]
     Indication: PAIN
  2. OPIOIDS [Suspect]
     Indication: PAIN
  3. MARIJUANA [Suspect]
     Indication: PAIN

REACTIONS (3)
  - Hyperaesthesia [None]
  - Dependence [None]
  - Toxicity to various agents [None]
